FAERS Safety Report 5120323-0 (Version None)
Quarter: 2006Q4

REPORT INFORMATION
  Report Type: 
  Country: None (occurrence: None)
  Receive Date: 20061004
  Receipt Date: 20060920
  Transmission Date: 20070319
  Serious: Yes (Hospitalization)
  Sender: FDA-Public Use
  Company Number: PHBS2006NO14456

PATIENT
  Age: 58 Year
  Sex: Female

DRUGS (1)
  1. DICLOFENAC [Suspect]
     Indication: ARTHRALGIA
     Dosage: 50 MG, TID
     Route: 048
     Dates: start: 20060821, end: 20060826

REACTIONS (8)
  - BLOOD URINE PRESENT [None]
  - C-REACTIVE PROTEIN INCREASED [None]
  - EYELID PTOSIS [None]
  - HAEMATURIA [None]
  - INFLUENZA LIKE ILLNESS [None]
  - PROTEIN URINE PRESENT [None]
  - PUPILS UNEQUAL [None]
  - RASH PRURITIC [None]
